FAERS Safety Report 9908922 (Version 1)
Quarter: 2014Q1

REPORT INFORMATION
  Report Type: Spontaneous
  Country: JP (occurrence: JP)
  Receive Date: 20140219
  Receipt Date: 20140219
  Transmission Date: 20141002
  Serious: Yes (Life-Threatening)
  Sender: FDA-Public Use
  Company Number: JP-B.I. PHARMACEUTICALS,INC./RIDGEFIELD-2014-BI-07334NB

PATIENT
  Age: 77 Year
  Sex: Male

DRUGS (11)
  1. PRAZAXA [Suspect]
     Indication: ATRIAL FIBRILLATION
     Dosage: 300 NG
     Route: 048
     Dates: start: 20140205, end: 20140206
  2. BAYASPIRIN [Suspect]
     Indication: ISCHAEMIC HEART DISEASE PROPHYLAXIS
     Dosage: 100 MG
     Route: 048
     Dates: end: 20140207
  3. TS-1 [Suspect]
     Indication: LUNG NEOPLASM MALIGNANT
     Route: 042
     Dates: start: 20140206, end: 20140207
  4. CARBOPLATIN [Suspect]
     Indication: LUNG NEOPLASM MALIGNANT
     Route: 042
     Dates: start: 20140206, end: 20140207
  5. GASTER D [Concomitant]
     Indication: PROPHYLAXIS
     Dosage: 20 MG
     Route: 048
  6. MEVALOTIN [Concomitant]
     Indication: HYPERLIPIDAEMIA
     Dosage: 5 MG
     Route: 048
  7. ALLOPURINOL [Concomitant]
     Indication: HYPERURICAEMIA
     Dosage: 100 MG
     Route: 048
  8. BEZATOL [Concomitant]
     Indication: HYPERLIPIDAEMIA
     Dosage: 100 MG
     Route: 048
  9. METGLUCO [Concomitant]
     Indication: DIABETES MELLITUS
     Dosage: 500 MG
     Route: 048
  10. ADALAT L [Concomitant]
     Indication: HYPERTENSION
     Dosage: 20 MG
     Route: 048
  11. JUVELA [Concomitant]
     Indication: DIABETES MELLITUS
     Dosage: 300 MG
     Route: 048

REACTIONS (2)
  - Enterocolitis haemorrhagic [Not Recovered/Not Resolved]
  - Coagulopathy [Unknown]
